FAERS Safety Report 9104091 (Version 2)
Quarter: 2013Q1

REPORT INFORMATION
  Report Type: Spontaneous
  Country: SE (occurrence: SE)
  Receive Date: 20130219
  Receipt Date: 20130226
  Transmission Date: 20140127
  Serious: Yes (Other)
  Sender: FDA-Public Use
  Company Number: PHHY2013SE015170

PATIENT
  Sex: Female

DRUGS (4)
  1. ACLASTA [Suspect]
     Indication: OSTEOPOROSIS
     Dosage: UNK UKN, UNK
     Route: 042
     Dates: start: 200902
  2. TROMBYL [Concomitant]
     Dosage: 75 MG, UNK
     Dates: start: 201112
  3. SALBUTAMOL [Concomitant]
     Dosage: UNK UKN, UNK
     Dates: start: 201112
  4. SPIRIVA [Concomitant]
     Dosage: UNK UKN, UNK
     Dates: start: 201112

REACTIONS (6)
  - Infection [Unknown]
  - Iridocyclitis [Recovered/Resolved]
  - Ocular hyperaemia [Recovered/Resolved]
  - Eye pain [Recovered/Resolved]
  - Haemorrhage [Not Recovered/Not Resolved]
  - Tooth fracture [Unknown]
